FAERS Safety Report 25800444 (Version 1)
Quarter: 2025Q3

REPORT INFORMATION
  Report Type: Report from Study
  Country: PE (occurrence: PE)
  Receive Date: 20250915
  Receipt Date: 20250915
  Transmission Date: 20251020
  Serious: Yes (Hospitalization, Other)
  Sender: BIOVITRUM
  Company Number: PE-AstraZeneca-CH-00947264A

PATIENT
  Age: 6 Month
  Sex: Male

DRUGS (3)
  1. PALIVIZUMAB [Suspect]
     Active Substance: PALIVIZUMAB
     Indication: Antiviral prophylaxis
     Route: 030
     Dates: start: 20250606
  2. PALIVIZUMAB [Suspect]
     Active Substance: PALIVIZUMAB
     Route: 030
     Dates: start: 20250704
  3. PALIVIZUMAB [Suspect]
     Active Substance: PALIVIZUMAB
     Route: 030
     Dates: start: 20250814

REACTIONS (9)
  - Sleep disorder [Unknown]
  - Irritability [Unknown]
  - Pyrexia [Not Recovered/Not Resolved]
  - Vomiting [Not Recovered/Not Resolved]
  - Crying [Unknown]
  - Diarrhoea [Not Recovered/Not Resolved]
  - Nasopharyngitis [Not Recovered/Not Resolved]
  - Cough [Not Recovered/Not Resolved]
  - Rhinorrhoea [Not Recovered/Not Resolved]

NARRATIVE: CASE EVENT DATE: 20250606
